FAERS Safety Report 10085666 (Version 1)
Quarter: 2014Q2

REPORT INFORMATION
  Report Type: Spontaneous
  Country: US (occurrence: None)
  Receive Date: 20140416
  Receipt Date: 20140416
  Transmission Date: 20141212
  Serious: Yes (Hospitalization)
  Sender: FDA-Public Use
  Company Number: SYM-2014-19657

PATIENT
  Age: 37 Year
  Sex: Female

DRUGS (1)
  1. XENAZINE (25 MILLIGRAM, TABLET) (TETRABENAZINE, TETRABENAZINE) [Suspect]
     Indication: PRODUCT USED FOR UNKNOWN INDICATION
     Route: 048
     Dates: start: 20130110

REACTIONS (1)
  - Hospitalisation [None]
